FAERS Safety Report 8226798-2 (Version None)
Quarter: 2012Q1

REPORT INFORMATION
  Report Type: 
  Country: None (occurrence: None)
  Receive Date: 20120322
  Receipt Date: 20120309
  Transmission Date: 20120608
  Serious: Yes (Hospitalization, Other)
  Sender: FDA-Public Use
  Company Number: US-BAYER-2011-050883

PATIENT
  Sex: Female
  Weight: 54 kg

DRUGS (19)
  1. PROMETHAZINE [Concomitant]
     Dosage: 25 MG
     Route: 048
     Dates: start: 20050420
  2. SEROQUEL [Concomitant]
  3. PHENERGAN [Concomitant]
  4. LORTAB [Concomitant]
  5. LOESTRIN 1.5/30 [Concomitant]
     Dosage: UNK
     Dates: start: 20060310
  6. PREVACID [Concomitant]
     Dosage: 30 MG
     Route: 048
     Dates: start: 20050406
  7. LIBRAX [Concomitant]
  8. BENICAR [Concomitant]
     Dosage: UNK
     Dates: start: 20060614
  9. RANITIDINE [Concomitant]
     Dosage: 150 MG
     Route: 048
     Dates: start: 20050422
  10. PRILOSEC [Concomitant]
  11. YASMIN [Suspect]
     Indication: PRODUCT USED FOR UNKNOWN INDICATION
     Dosage: UNK
     Dates: start: 20040720, end: 20070307
  12. YASMIN [Suspect]
     Dosage: UNK
     Dates: start: 20020304, end: 20050502
  13. ACIPHEX [Concomitant]
     Dosage: 1 EVERY DAY
     Dates: start: 20050614
  14. EFFEXOR [Concomitant]
  15. CHLORDIAZEPOXIDE [Concomitant]
  16. MOTRIN [Concomitant]
  17. MYLANTA [CALCIUM CARBONATE] [Concomitant]
  18. LEXAPRO [Concomitant]
     Dosage: 10 MG
     Route: 048
     Dates: start: 20050414
  19. CIPROFLOXACIN [Concomitant]
     Dosage: 500 MG
     Dates: start: 20050422

REACTIONS (18)
  - CONSTIPATION [None]
  - DIARRHOEA [None]
  - CHOLECYSTITIS CHRONIC [None]
  - CHOLELITHIASIS [None]
  - PAIN [None]
  - MEDICAL DIET [None]
  - FLATULENCE [None]
  - STRESS [None]
  - INJURY [None]
  - DEPRESSION [None]
  - RENAL FAILURE ACUTE [None]
  - SCAR [None]
  - IRRITABILITY [None]
  - HYPERTENSION [None]
  - ABDOMINAL DISTENSION [None]
  - DYSPEPSIA [None]
  - ANXIETY [None]
  - MENTAL DISORDER [None]
